FAERS Safety Report 11426995 (Version 1)
Quarter: 2015Q3

REPORT INFORMATION
  Report Type: Other
  Country: US (occurrence: US)
  Receive Date: 20150827
  Receipt Date: 20150827
  Transmission Date: 20151125
  Serious: Yes (Other)
  Sender: FDA-Public Use
  Company Number: US-TARO-2015TAR00734

PATIENT
  Age: 63 Year
  Sex: Male
  Weight: 156.46 kg

DRUGS (1)
  1. PHENYTOIN SODIUM EXTENDED [Suspect]
     Active Substance: PHENYTOIN SODIUM
     Indication: SEIZURE
     Dosage: 500 MG, 1X/DAY
     Route: 048
     Dates: start: 20150515, end: 201505

REACTIONS (3)
  - Product substitution issue [Recovered/Resolved]
  - Petit mal epilepsy [Recovered/Resolved]
  - Aura [Recovered/Resolved]

NARRATIVE: CASE EVENT DATE: 201505
